FAERS Safety Report 6263191-6 (Version None)
Quarter: 2009Q3

REPORT INFORMATION
  Report Type: 
  Country: None (occurrence: None)
  Receive Date: 20090710
  Receipt Date: 20090701
  Transmission Date: 20100115
  Serious: Yes (Other)
  Sender: FDA-Public Use
  Company Number: US-BRISTOL-MYERS SQUIBB COMPANY-14688501

PATIENT
  Sex: Male

DRUGS (7)
  1. ABILIFY [Suspect]
     Route: 064
     Dates: end: 20080301
  2. PERCOCET [Suspect]
     Route: 064
     Dates: start: 20080101, end: 20080301
  3. REBIF [Suspect]
     Route: 064
     Dates: end: 20080315
  4. ECSTASY [Suspect]
     Route: 064
     Dates: end: 20080101
  5. ETHANOL [Suspect]
     Route: 064
     Dates: end: 20080301
  6. TYLOX [Suspect]
     Route: 064
     Dates: end: 20080301
  7. TYLENOL [Concomitant]
     Route: 064

REACTIONS (2)
  - STILLBIRTH [None]
  - UMBILICAL CORD AROUND NECK [None]
